FAERS Safety Report 24925077 (Version 1)
Quarter: 2025Q1

REPORT INFORMATION
  Report Type: Report from Study
  Country: TH (occurrence: TH)
  Receive Date: 20250204
  Receipt Date: 20250204
  Transmission Date: 20250408
  Serious: No
  Sender: EXELIXIS
  Company Number: TH-IPSEN Group, Research and Development-2024-09923

PATIENT
  Age: 53 Year
  Sex: Male

DRUGS (3)
  1. CABOMETYX [Suspect]
     Active Substance: CABOZANTINIB S-MALATE
     Indication: Renal cell carcinoma
     Dosage: 60 MG, QD (MONOTHERAPY)
     Route: 065
     Dates: start: 20240313
  2. CABOMETYX [Suspect]
     Active Substance: CABOZANTINIB S-MALATE
     Dosage: 40 MG, QD
     Route: 048
     Dates: start: 20240423, end: 20240528
  3. NIVOLUMAB [Suspect]
     Active Substance: NIVOLUMAB
     Indication: Renal cell carcinoma
     Route: 065
     Dates: start: 20240423

REACTIONS (7)
  - Abscess limb [Unknown]
  - Confusional state [Unknown]
  - Muscle fatigue [Unknown]
  - Decreased appetite [Unknown]
  - Disorientation [Unknown]
  - Accidental overdose [Unknown]
  - Drug ineffective [Unknown]

NARRATIVE: CASE EVENT DATE: 20240313
